FAERS Safety Report 23669305 (Version 2)
Quarter: 2024Q3

REPORT INFORMATION
  Report Type: Spontaneous
  Country: US (occurrence: US)
  Receive Date: 20240325
  Receipt Date: 20240912
  Transmission Date: 20241017
  Serious: No
  Sender: SANOFI AVENTIS
  Company Number: US-SA-SAC20240322000194

PATIENT
  Age: 55 Year
  Sex: Female

DRUGS (1)
  1. DUPIXENT [Suspect]
     Active Substance: DUPILUMAB
     Indication: Asthma
     Dosage: 300 MG, QOW
     Route: 058

REACTIONS (6)
  - COVID-19 [Recovering/Resolving]
  - Dyspnoea [Recovering/Resolving]
  - Eye discharge [Unknown]
  - Ocular hyperaemia [Unknown]
  - Injection site reaction [Unknown]
  - Dry eye [Unknown]
